FAERS Safety Report 15478218 (Version 6)
Quarter: 2019Q1

REPORT INFORMATION
  Report Type: Report from Study
  Country: SK (occurrence: SK)
  Receive Date: 20181009
  Receipt Date: 20190212
  Transmission Date: 20190417
  Serious: Yes (Hospitalization)
  Sender: FDA-Public Use
  Company Number: SK-MYLANLABS-2018M1073680

PATIENT
  Age: 22 Year
  Sex: Female
  Weight: 55 kg

DRUGS (9)
  1. BROMOCRIPTINE [Suspect]
     Active Substance: BROMOCRIPTINE
     Dosage: UNK
     Route: 065
  2. ALEMTUZUMAB [Suspect]
     Active Substance: ALEMTUZUMAB
     Indication: MULTIPLE SCLEROSIS RELAPSE
     Dosage: 12 MILLIGRAM, QD
     Route: 041
     Dates: start: 20161205, end: 20161209
  3. BROMOCRIPTINE [Suspect]
     Active Substance: BROMOCRIPTINE
     Indication: PRODUCT USED FOR UNKNOWN INDICATION
     Dosage: UNK
     Route: 065
     Dates: start: 20180510, end: 20180515
  4. GABAPENTIN. [Concomitant]
     Active Substance: GABAPENTIN
     Indication: MULTIPLE SCLEROSIS
     Dosage: UNK
     Route: 065
  5. VITAMIN D                          /00107901/ [Concomitant]
     Active Substance: ERGOCALCIFEROL
     Indication: MULTIPLE SCLEROSIS
     Dosage: UNK
     Route: 065
  6. VITAMIN B [Concomitant]
     Active Substance: VITAMIN B
     Indication: MULTIPLE SCLEROSIS
     Dosage: UNK
     Route: 065
  7. LEMTRADA [Suspect]
     Active Substance: ALEMTUZUMAB
     Indication: MULTIPLE SCLEROSIS RELAPSE
     Dosage: 12 MG, QD
     Route: 041
     Dates: start: 20161205, end: 20161209
  8. ALEMTUZUMAB [Suspect]
     Active Substance: ALEMTUZUMAB
     Dosage: 12 UNK
     Route: 041
     Dates: start: 20180627
  9. ERGOCALCIFEROL. [Concomitant]
     Active Substance: ERGOCALCIFEROL
     Indication: MULTIPLE SCLEROSIS
     Dosage: UNK

REACTIONS (14)
  - Mastitis [Not Recovered/Not Resolved]
  - Hyperthyroidism [Recovered/Resolved]
  - Tracheobronchitis [Recovered/Resolved]
  - Folliculitis [Not Recovered/Not Resolved]
  - Nasopharyngitis [Recovered/Resolved]
  - Back pain [Recovered/Resolved]
  - Headache [Recovered/Resolved]
  - Autonomic nervous system imbalance [Recovered/Resolved]
  - Pneumonia [Recovered/Resolved]
  - Rash [Recovered/Resolved]
  - Ovarian cyst ruptured [Recovered/Resolved]
  - Hypotension [Recovered/Resolved]
  - Maternal exposure during pregnancy [Recovered/Resolved]
  - Menorrhagia [Recovering/Resolving]

NARRATIVE: CASE EVENT DATE: 20161207
